FAERS Safety Report 5740984-2 (Version None)
Quarter: 2008Q2

REPORT INFORMATION
  Report Type: 
  Country: None (occurrence: None)
  Receive Date: 20080516
  Receipt Date: 20080507
  Transmission Date: 20081010
  Serious: Yes (Hospitalization)
  Sender: FDA-Public Use
  Company Number: US-PFIZER INC-2008033473

PATIENT
  Sex: Female
  Weight: 46.818 kg

DRUGS (3)
  1. NARDIL [Suspect]
     Indication: DEPRESSION
  2. NARDIL [Suspect]
     Indication: ANXIETY
  3. XANAX [Concomitant]

REACTIONS (2)
  - UNEVALUABLE EVENT [None]
  - WITHDRAWAL SYNDROME [None]
